FAERS Safety Report 5698516-3 (Version None)
Quarter: 2008Q2

REPORT INFORMATION
  Report Type: 
  Country: None (occurrence: None)
  Receive Date: 20080408
  Receipt Date: 20060731
  Transmission Date: 20081010
  Serious: No
  Sender: FDA-Public Use
  Company Number: US-BAYER-US-2006-021396

PATIENT
  Age: 44 Year
  Sex: Female
  Weight: 52 kg

DRUGS (4)
  1. CLIMARA [Suspect]
     Indication: MENOPAUSAL SYMPTOMS
     Route: 062
     Dates: start: 20060401
  2. ALPRAZOLAM [Concomitant]
     Indication: ANXIETY
     Dosage: UNIT DOSE: 0.25 MG
     Route: 048
  3. CALCIUM [Concomitant]
     Dosage: UNIT DOSE: 600 MG
  4. METAMUCIL [Concomitant]

REACTIONS (3)
  - ALOPECIA [None]
  - APPLICATION SITE ERYTHEMA [None]
  - HAIR TEXTURE ABNORMAL [None]
